FAERS Safety Report 12711216 (Version 1)
Quarter: 2016Q3

REPORT INFORMATION
  Report Type: Spontaneous
  Country: FR (occurrence: FR)
  Receive Date: 20160902
  Receipt Date: 20160902
  Transmission Date: 20161109
  Serious: Yes (Hospitalization)
  Sender: FDA-Public Use
  Company Number: FR-INVENTIA-000135

PATIENT
  Age: 82 Year
  Sex: Female

DRUGS (6)
  1. CELIPROLOL [Concomitant]
     Active Substance: CELIPROLOL
  2. ATORVASTATIN [Concomitant]
     Active Substance: ATORVASTATIN
  3. TRAMADOL. [Concomitant]
     Active Substance: TRAMADOL
  4. DULOXETINE. [Suspect]
     Active Substance: DULOXETINE
     Indication: PRODUCT USED FOR UNKNOWN INDICATION
  5. CLORAZEPIC ACID [Concomitant]
     Active Substance: CLORAZEPIC ACID
  6. PREGABALIN. [Concomitant]
     Active Substance: PREGABALIN

REACTIONS (1)
  - Posterior reversible encephalopathy syndrome [Recovered/Resolved]
